FAERS Safety Report 4663937-4 (Version None)
Quarter: 2005Q2

REPORT INFORMATION
  Report Type: 
  Country: None (occurrence: None)
  Receive Date: 20050419
  Receipt Date: 20040914
  Transmission Date: 20051028
  Serious: Yes (Other)
  Sender: FDA-Public Use
  Company Number: 1558

PATIENT
  Sex: Female
  Weight: 81.6475 kg

DRUGS (5)
  1. DAUNORUBICIN HCL [Suspect]
  2. AVAPRO [Concomitant]
  3. ATENORETIC [Concomitant]
  4. RHINOCORT [Concomitant]
  5. PATANOL [Concomitant]

REACTIONS (2)
  - ACCIDENTAL EXPOSURE [None]
  - PARAESTHESIA [None]
